FAERS Safety Report 7039421-X (Version None)
Quarter: 2010Q4

REPORT INFORMATION
  Report Type: 
  Country: None (occurrence: None)
  Receive Date: 20101012
  Receipt Date: 20101001
  Transmission Date: 20110411
  Serious: Yes (Hospitalization, Other)
  Sender: FDA-Public Use
  Company Number: FR-ROCHE-725577

PATIENT
  Sex: Male
  Weight: 35 kg

DRUGS (14)
  1. BEVACIZUMAB [Suspect]
     Indication: SARCOMA
     Dosage: FORM:7.5 MG/KG, LAST DOSE PRIOR TO SAE: 17 SEPTEMBER 2010.
     Route: 042
     Dates: start: 20100828
  2. ACTINOMYCIN D [Suspect]
     Indication: SARCOMA
     Dosage: FORM:1.5 MG/M2, LAST DOSE:28 AUG 2010
     Route: 042
     Dates: start: 20100828
  3. ACTINOMYCIN D [Suspect]
     Dosage: LAST DOSE PRIOR TO SAE: 17 SEPTEMBER 2010.
     Route: 042
  4. DOXORUBICIN [Suspect]
     Indication: SARCOMA
     Dosage: FORM:60 MG/M2, LAST DOSE:29 AUG 2010
     Route: 042
     Dates: start: 20100828
  5. DOXORUBICIN [Suspect]
     Dosage: LAST DOSE PRIOR TO SAE : 18 SEPTEMBER 2010.
     Route: 042
  6. IFOSFAMIDE [Suspect]
     Indication: SARCOMA
     Dosage: FORM:6 G/M2, LAST DOSE:29 AUG 2010
     Route: 042
     Dates: start: 20100828
  7. IFOSFAMIDE [Suspect]
     Dosage: LAST DOSE PRIOR TO SAE:17 SPRTEMBER 2010.
     Route: 042
  8. VINCRISTINE [Suspect]
     Indication: SARCOMA
     Dosage: LAST DOSE:28 AUG 2010, FORM:1.5 MG/M2
     Route: 042
     Dates: start: 20100828
  9. VINCRISTINE [Suspect]
     Dosage: RESTARTED. LAST DOSE PRIOR TO SAE : 17 SEPTEMBER 2010.
     Route: 042
     Dates: start: 20100910
  10. BACTRIM [Concomitant]
     Dosage: REPORTED AS 800MG*3/W
     Dates: start: 20100827
  11. PERFALGAN [Concomitant]
     Dosage: REPORTED AS 500MG*4/D
     Dates: start: 20100829
  12. ZOFRAN [Concomitant]
     Dosage: REPORTED AS 8MG*2/D
     Dates: start: 20100828, end: 20100902
  13. PLITICAN [Concomitant]
     Dates: start: 20100828, end: 20100902
  14. SPASFON [Concomitant]
     Dosage: DOSE:1-2AMP/D
     Dates: start: 20100830

REACTIONS (4)
  - FEBRILE BONE MARROW APLASIA [None]
  - MUCOSAL INFLAMMATION [None]
  - NEURALGIA [None]
  - PERIPHERAL SENSORIMOTOR NEUROPATHY [None]
